FAERS Safety Report 7130217-7 (Version None)
Quarter: 2010Q4

REPORT INFORMATION
  Report Type: 
  Country: None (occurrence: None)
  Receive Date: 20101116
  Receipt Date: 20101106
  Transmission Date: 20110411
  Serious: Yes (Hospitalization)
  Sender: FDA-Public Use
  Company Number: OMPQ-NO-1011S-0973

PATIENT
  Age: 59 Year
  Sex: Female

DRUGS (1)
  1. OMNIPAQUE 140 [Suspect]
     Indication: PRODUCT USED FOR UNKNOWN INDICATION
     Dosage: 150 ML, SINGLE DOSE, I.V.
     Route: 042
     Dates: start: 20101026, end: 20101026

REACTIONS (2)
  - HYPERTENSION [None]
  - PULMONARY OEDEMA [None]
